FAERS Safety Report 8953119 (Version 4)
Quarter: 2013Q1

REPORT INFORMATION
  Report Type: Spontaneous
  Country: IE (occurrence: IE)
  Receive Date: 20121206
  Receipt Date: 20130227
  Transmission Date: 20140127
  Serious: Yes (Death, Hospitalization, Other)
  Sender: FDA-Public Use
  Company Number: IE-AMGEN-IRLSP2012074247

PATIENT
  Age: 84 Year
  Sex: Female

DRUGS (4)
  1. PROLIA [Suspect]
     Indication: OSTEOPOROSIS
     Dosage: 60 MG, Q6MO
     Route: 058
     Dates: start: 20120828
  2. NORTEM [Concomitant]
     Dosage: 20 MG, QD
     Route: 048
  3. IXPRIM [Concomitant]
     Dosage: UNK UNK, TID
     Route: 048
  4. NUSEALS [Concomitant]
     Dosage: 75 MG, QD
     Route: 048

REACTIONS (6)
  - Lung cancer metastatic [Fatal]
  - Abdominal pain [Unknown]
  - Urinary tract infection [Unknown]
  - Metastases to liver [Unknown]
  - Hepatomegaly [Unknown]
  - Adrenal disorder [Unknown]
